FAERS Safety Report 24646308 (Version 1)
Quarter: 2024Q4

REPORT INFORMATION
  Report Type: Spontaneous
  Country: US (occurrence: US)
  Receive Date: 20241121
  Receipt Date: 20241121
  Transmission Date: 20250114
  Serious: No
  Sender: SANDOZ
  Company Number: US-SANDOZ-SDZ2024US096975

PATIENT
  Sex: Female

DRUGS (4)
  1. COMBIPATCH [Suspect]
     Active Substance: ESTRADIOL\NORETHINDRONE ACETATE
     Indication: Hot flush
     Dosage: 0.05/0.14 MG
     Route: 062
     Dates: start: 202408
  2. COMBIPATCH [Suspect]
     Active Substance: ESTRADIOL\NORETHINDRONE ACETATE
     Indication: Night sweats
     Dosage: 0.05/0.25 MG
     Route: 062
     Dates: start: 202407
  3. ESTROGENS [Concomitant]
     Active Substance: ESTROGENS
     Indication: Product used for unknown indication
     Dosage: UNK
     Route: 065
     Dates: start: 202406
  4. ESTROGENS [Concomitant]
     Active Substance: ESTROGENS
     Dosage: UNK
     Route: 065
     Dates: start: 202408

REACTIONS (2)
  - Breast pain [Recovered/Resolved]
  - Abdominal distension [Recovered/Resolved]

NARRATIVE: CASE EVENT DATE: 20240101
